FAERS Safety Report 8278652-8 (Version None)
Quarter: 2012Q2

REPORT INFORMATION
  Report Type: 
  Country: None (occurrence: None)
  Receive Date: 20120412
  Receipt Date: 20111101
  Transmission Date: 20120825
  Serious: No
  Sender: FDA-Public Use
  Company Number: US-ASTRAZENECA-2011SE61426

PATIENT
  Age: 77 Year
  Sex: Female

DRUGS (2)
  1. NEXIUM [Suspect]
     Route: 048
  2. ANTIBIOTICS [Suspect]
     Route: 065

REACTIONS (8)
  - OROPHARYNGEAL PAIN [None]
  - THROAT IRRITATION [None]
  - DRUG DOSE OMISSION [None]
  - PAIN [None]
  - MULTIPLE ALLERGIES [None]
  - FATIGUE [None]
  - MALAISE [None]
  - COUGH [None]
